FAERS Safety Report 5397265-9 (Version None)
Quarter: 2007Q3

REPORT INFORMATION
  Report Type: 
  Country: None (occurrence: None)
  Receive Date: 20070725
  Receipt Date: 20070713
  Transmission Date: 20080115
  Serious: Yes (Hospitalization, Other)
  Sender: FDA-Public Use
  Company Number: GB-PFIZER INC-2007060041

PATIENT
  Sex: Male
  Weight: 3.5 kg

DRUGS (7)
  1. HYDROCORTISONE SODIUM SUCCINATE [Suspect]
     Route: 064
  2. AMINOPHYLLINE [Suspect]
     Route: 064
  3. AMOXICILLIN [Suspect]
     Route: 064
  4. ATROVENT [Suspect]
     Route: 064
  5. CLARITHROMYCIN [Suspect]
     Route: 064
  6. MAGNESIUM SULFATE [Suspect]
     Route: 064
  7. SALBUTAMOL [Suspect]
     Route: 064

REACTIONS (5)
  - APGAR SCORE LOW [None]
  - CAESAREAN SECTION [None]
  - DRUG EXPOSURE DURING PREGNANCY [None]
  - FOETAL DISTRESS SYNDROME [None]
  - TACHYCARDIA FOETAL [None]
